FAERS Safety Report 23726376 (Version 1)
Quarter: 2024Q2

REPORT INFORMATION
  Report Type: Other
  Country: CN (occurrence: None)
  Receive Date: 20240410
  Receipt Date: 20240410
  Transmission Date: 20240716
  Serious: Yes (Other)
  Sender: FDA-Public Use
  Company Number: CN-ROCHE-3539232

PATIENT
  Age: 39 Year
  Sex: Female

DRUGS (3)
  1. BEVACIZUMAB [Suspect]
     Active Substance: BEVACIZUMAB
     Indication: Myxofibrosarcoma
     Dosage: DAY 1, THE 7TH TO 10TH CYCLES OF TREATMENT WERE?PERFORMED
     Route: 065
  2. ETOPOSIDE [Suspect]
     Active Substance: ETOPOSIDE
     Indication: Myxofibrosarcoma
     Dosage: CONTINUED FOR 11TH-13TH CYCLE
     Route: 065
  3. SUGEMALIMAB [Suspect]
     Active Substance: SUGEMALIMAB
     Indication: Myxofibrosarcoma
     Dosage: DAY 1
     Route: 065
     Dates: start: 202302

REACTIONS (2)
  - Disease progression [Unknown]
  - Metastases to central nervous system [Unknown]
